FAERS Safety Report 16449763 (Version 1)
Quarter: 2019Q2

REPORT INFORMATION
  Report Type: Spontaneous
  Country: GB (occurrence: GB)
  Receive Date: 20190619
  Receipt Date: 20190619
  Transmission Date: 20190711
  Serious: Yes (Hospitalization)
  Sender: FDA-Public Use
  Company Number: GB-ASTRAZENECA-2019SE86330

PATIENT
  Age: 74 Year
  Sex: Male

DRUGS (9)
  1. ATORVASTATIN [Concomitant]
     Active Substance: ATORVASTATIN
  2. ISPAGHULA EXTRACT\PSYLLIUM [Concomitant]
     Active Substance: HERBALS\PLANTAGO OVATA SEED\PLANTAGO SEED
  3. BISOPROLOL [Concomitant]
     Active Substance: BISOPROLOL
  4. PERINDOPRIL [Concomitant]
     Active Substance: PERINDOPRIL
  5. OMEPRAZOLE. [Suspect]
     Active Substance: OMEPRAZOLE
     Route: 048
     Dates: end: 20190507
  6. DONEPEZIL. [Suspect]
     Active Substance: DONEPEZIL
     Indication: DEMENTIA ALZHEIMER^S TYPE
     Dosage: BED TIME. INCREASED FROM 5MG. DECREASED BACK TO 5MG ON 06/05/2019
     Route: 048
     Dates: end: 20190506
  7. NICORANDIL [Concomitant]
     Active Substance: NICORANDIL
  8. DONEPEZIL. [Suspect]
     Active Substance: DONEPEZIL
     Indication: DEMENTIA ALZHEIMER^S TYPE
     Dosage: REDUCED-5 MG DAILY
     Route: 048
  9. ACETYLSALICYLIC ACID [Concomitant]
     Active Substance: ASPIRIN

REACTIONS (4)
  - Inappropriate antidiuretic hormone secretion [Unknown]
  - Muscle contractions involuntary [Unknown]
  - Confusional state [Unknown]
  - Hyponatraemia [Unknown]
